FAERS Safety Report 8112932-1 (Version None)
Quarter: 2012Q1

REPORT INFORMATION
  Report Type: 
  Country: None (occurrence: None)
  Receive Date: 20120203
  Receipt Date: 20120131
  Transmission Date: 20120608
  Serious: Yes (Hospitalization)
  Sender: FDA-Public Use
  Company Number: US-ACTELION-A-NJ2012-60355

PATIENT

DRUGS (4)
  1. REVATIO [Concomitant]
  2. WARFARIN SODIUM [Concomitant]
  3. VENTAVIS [Suspect]
     Indication: PULMONARY ARTERIAL HYPERTENSION
     Dosage: 6 TIMES DAILY
     Route: 055
     Dates: start: 20111026
  4. LETAIRIS [Concomitant]

REACTIONS (2)
  - DYSPNOEA [None]
  - VIRAL INFECTION [None]
